FAERS Safety Report 24299276 (Version 1)
Quarter: 2024Q3

REPORT INFORMATION
  Report Type: Spontaneous
  Country: US (occurrence: None)
  Receive Date: 20240909
  Receipt Date: 20240909
  Transmission Date: 20241017
  Serious: Yes (Life-Threatening)
  Sender: Public
  Company Number: None

PATIENT
  Age: 58 Year
  Sex: Female
  Weight: 76.5 kg

DRUGS (8)
  1. DROPERIDOL [Suspect]
     Active Substance: DROPERIDOL
     Indication: Nausea
     Route: 042
     Dates: start: 20240903, end: 20240903
  2. DROPERIDOL [Suspect]
     Active Substance: DROPERIDOL
     Indication: Vomiting
  3. SIMVASTATIN [Concomitant]
     Active Substance: SIMVASTATIN
  4. OMEPRAZOLE [Concomitant]
     Active Substance: OMEPRAZOLE
  5. CALCIUM [Concomitant]
     Active Substance: CALCIUM
  6. vitamin D supplements [Concomitant]
  7. IBUPROFEN [Concomitant]
  8. TYLENOL [Concomitant]
     Active Substance: ACETAMINOPHEN

REACTIONS (6)
  - Musculoskeletal stiffness [None]
  - Agitation [None]
  - Restlessness [None]
  - Emotional distress [None]
  - Disturbance in attention [None]
  - Adverse drug reaction [None]

NARRATIVE: CASE EVENT DATE: 20240903
